FAERS Safety Report 4808954-6 (Version None)
Quarter: 2005Q4

REPORT INFORMATION
  Report Type: 
  Country: None (occurrence: None)
  Receive Date: 20051024
  Receipt Date: 20051006
  Transmission Date: 20060501
  Serious: Yes (Death)
  Sender: FDA-Public Use
  Company Number: 107772ISR

PATIENT
  Age: 64 Year
  Sex: Male

DRUGS (18)
  1. FLUOROURACIL [Suspect]
     Indication: GASTRIC CANCER
     Dosage: 3500 MILLIGRAM INTRAVENOUS (NOS)
     Route: 042
     Dates: start: 20040907, end: 20040907
  2. CISPLATIN [Suspect]
     Indication: GASTRIC CANCER
     Dosage: 90 MILLIGRAM INTRAVENOUS (NOS)
     Route: 042
     Dates: start: 20040907, end: 20040907
  3. CALCIUM FOLINATE [Suspect]
     Indication: GASTRIC CANCER
     Dosage: 900 MILLIGRAM INTRAVENOUS (NOS)
     Route: 042
     Dates: start: 20040907, end: 20040907
  4. METOPROLOL TARTRATE [Concomitant]
  5. TORSEMIDE [Concomitant]
  6. THIAMINE AND PYRIDOXINE [Concomitant]
  7. ASPIRIN [Concomitant]
  8. SULPIRIDE [Concomitant]
  9. PANTOPRAZOLE SODIUM [Concomitant]
  10. TPN ELECTROLYTES IN PLASTIC CONTAINER [Concomitant]
  11. ELECTROLYTES [Concomitant]
  12. TRAMADOL HYDROCHLORIDE [Concomitant]
  13. PETHIDINE HYDROCHLORIDE [Concomitant]
  14. MORPHINE [Concomitant]
  15. MORPHINE [Concomitant]
  16. HEPARIN [Concomitant]
  17. GRANISETRON  HCL [Concomitant]
  18. DEXAMETHASONE [Concomitant]

REACTIONS (2)
  - HEPATIC FAILURE [None]
  - HEPATOTOXICITY [None]
